FAERS Safety Report 13410509 (Version 5)
Quarter: 2023Q1

REPORT INFORMATION
  Report Type: Spontaneous
  Country: US (occurrence: US)
  Receive Date: 20170406
  Receipt Date: 20230202
  Transmission Date: 20230417
  Serious: No
  Sender: FDA-Public Use
  Company Number: US-JNJFOC-20170227217

PATIENT
  Sex: Male

DRUGS (13)
  1. RISPERDAL [Suspect]
     Active Substance: RISPERIDONE
     Indication: Bipolar disorder
     Route: 048
     Dates: start: 19990908, end: 20040304
  2. RISPERDAL [Suspect]
     Active Substance: RISPERIDONE
     Indication: Depression
     Route: 048
     Dates: start: 20040330, end: 20041207
  3. RISPERDAL [Suspect]
     Active Substance: RISPERIDONE
     Indication: Persistent depressive disorder
     Route: 048
     Dates: start: 20030502, end: 20050124
  4. RISPERDAL [Suspect]
     Active Substance: RISPERIDONE
     Indication: Impulse-control disorder
     Route: 048
     Dates: start: 20040711, end: 20041119
  5. RISPERDAL [Suspect]
     Active Substance: RISPERIDONE
     Indication: Attention deficit hyperactivity disorder
     Dosage: 0.25 MG TABLET IN MORNING AND 0.5 MG TABLET AT BEDTIME
     Route: 048
     Dates: start: 20020920, end: 20021022
  6. RISPERDAL [Suspect]
     Active Substance: RISPERIDONE
     Route: 048
     Dates: start: 20080422, end: 20190309
  7. RISPERDAL [Suspect]
     Active Substance: RISPERIDONE
     Dosage: 1 MG ONE TABLET IN MORNING AND TWO TABLETS AT BED TIME
     Route: 048
     Dates: start: 20020815
  8. RISPERDAL [Suspect]
     Active Substance: RISPERIDONE
     Dosage: RECEIVED 0.5 MG IN MORNING AND 1 MG AT BEDTIME
     Route: 048
     Dates: start: 20030106, end: 20030219
  9. RISPERDAL [Suspect]
     Active Substance: RISPERIDONE
     Dosage: 1MG HALF TABLET IN MORNING AND 1 TABLET AT BED TIME
     Route: 048
     Dates: start: 20030418
  10. RISPERDAL [Suspect]
     Active Substance: RISPERIDONE
     Dosage: 0.5 MG ONE TABLET 8 AM AND 4 PM AND 2 TABLETS AT BED TIME
     Route: 048
     Dates: start: 20031203
  11. RISPERDAL [Suspect]
     Active Substance: RISPERIDONE
     Dosage: 5 MG ONE TABLET 8 AM, 1 PM AND 4 PM AND 2 TABLETS AT BED TIME
     Route: 048
     Dates: start: 20040311
  12. RISPERDAL M-TAB [Suspect]
     Active Substance: RISPERIDONE
     Indication: Attention deficit hyperactivity disorder
     Route: 048
     Dates: start: 20080603
  13. RISPERDAL [Suspect]
     Active Substance: RISPERIDONE
     Indication: Attention deficit hyperactivity disorder
     Dosage: 1 MG/ML
     Route: 048
     Dates: start: 20090410

REACTIONS (4)
  - Emotional distress [Unknown]
  - Gynaecomastia [Unknown]
  - Depression [Unknown]
  - Off label use [Unknown]

NARRATIVE: CASE EVENT DATE: 20040101
